FAERS Safety Report 6735647-0 (Version None)
Quarter: 2010Q2

REPORT INFORMATION
  Report Type: 
  Country: None (occurrence: None)
  Receive Date: 20100521
  Receipt Date: 20100510
  Transmission Date: 20101027
  Serious: Yes (Other)
  Sender: FDA-Public Use
  Company Number: PHHY2010DE30413

PATIENT
  Sex: Female
  Weight: 69 kg

DRUGS (4)
  1. RASILEZ [Suspect]
     Indication: HYPERTENSION
     Dosage: 150 MG, QD
     Route: 048
     Dates: start: 20100301
  2. RASILEZ [Suspect]
     Dosage: 300 MG, QD
  3. LEVEMIR [Concomitant]
     Indication: DIABETES MELLITUS
     Dosage: UNK
     Dates: start: 20100301
  4. VIGANTOLETTEN [Concomitant]
     Dosage: UNK

REACTIONS (5)
  - CONDITION AGGRAVATED [None]
  - CORNEAL DYSTROPHY [None]
  - DRY EYE [None]
  - EYE PAIN [None]
  - INTRAOCULAR PRESSURE TEST ABNORMAL [None]
